FAERS Safety Report 15200554 (Version 2)
Quarter: 2018Q3

REPORT INFORMATION
  Report Type: Report from Study
  Country: US (occurrence: US)
  Receive Date: 20180726
  Receipt Date: 20180814
  Transmission Date: 20181010
  Serious: Yes (Hospitalization)
  Sender: FDA-Public Use
  Company Number: US-EMD SERONO-E2B_90052318

PATIENT
  Age: 60 Year
  Sex: Male
  Weight: 95 kg

DRUGS (1)
  1. REBIF [Suspect]
     Active Substance: INTERFERON BETA-1A
     Indication: MULTIPLE SCLEROSIS
     Route: 058
     Dates: start: 20160210, end: 20180518

REACTIONS (3)
  - Adverse drug reaction [Unknown]
  - Asthenia [Recovered/Resolved]
  - Pyrexia [Recovered/Resolved]

NARRATIVE: CASE EVENT DATE: 201805
